FAERS Safety Report 13422773 (Version 6)
Quarter: 2017Q4

REPORT INFORMATION
  Report Type: Spontaneous
  Country: US (occurrence: US)
  Receive Date: 20170410
  Receipt Date: 20171108
  Transmission Date: 20180320
  Serious: Yes (Other)
  Sender: FDA-Public Use
  Company Number: PHEH2017US010013

PATIENT
  Sex: Female
  Weight: 55.78 kg

DRUGS (5)
  1. ZOFRAN [Suspect]
     Active Substance: ONDANSETRON HYDROCHLORIDE
     Indication: PRODUCT USED FOR UNKNOWN INDICATION
     Route: 048
  2. ONDANSETRONE DR. REDDY^S [Suspect]
     Active Substance: ONDANSETRON HYDROCHLORIDE
     Indication: VOMITING IN PREGNANCY
     Dosage: 08 MG, UNK
     Route: 065
     Dates: start: 20120817, end: 201209
  3. ZOFRAN [Suspect]
     Active Substance: ONDANSETRON HYDROCHLORIDE
     Indication: PRODUCT USED FOR UNKNOWN INDICATION
     Route: 042
  4. ZOFRAN [Suspect]
     Active Substance: ONDANSETRON HYDROCHLORIDE
     Indication: PRODUCT USED FOR UNKNOWN INDICATION
     Route: 048
  5. ONDANSETRON [Suspect]
     Active Substance: ONDANSETRON
     Indication: VOMITING IN PREGNANCY
     Dosage: 08 MG, UNK
     Route: 065
     Dates: start: 20120910, end: 20120921

REACTIONS (22)
  - Maternal exposure during pregnancy [Unknown]
  - Depression [Unknown]
  - Back pain [Unknown]
  - Amniotic cavity infection [Unknown]
  - Emotional distress [Unknown]
  - Anhedonia [Unknown]
  - Palpitations [Unknown]
  - Suicidal ideation [Unknown]
  - Rectal haemorrhage [Unknown]
  - Goitre [Unknown]
  - Iron deficiency anaemia [Unknown]
  - Major depression [Unknown]
  - Psychotic disorder [Unknown]
  - Gonorrhoea [Unknown]
  - Fatigue [Unknown]
  - Ovarian cyst [Unknown]
  - Chlamydial infection [Unknown]
  - Contusion [Unknown]
  - Anxiety [Unknown]
  - Product use issue [Unknown]
  - Injury [Unknown]
  - Dyspnoea [Unknown]
